FAERS Safety Report 20525960 (Version 1)
Quarter: 2022Q1

REPORT INFORMATION
  Report Type: Spontaneous
  Country: US (occurrence: US)
  Receive Date: 20220228
  Receipt Date: 20220228
  Transmission Date: 20220423
  Serious: No
  Sender: FDA-Public Use
  Company Number: US-drreddys-SPO/USA/22/0147130

PATIENT

DRUGS (3)
  1. NUPERCAINAL [Suspect]
     Active Substance: DIBUCAINE
     Indication: Infection
  2. NUPERCAINAL [Suspect]
     Active Substance: DIBUCAINE
     Indication: Contusion
  3. NUPERCAINAL [Suspect]
     Active Substance: DIBUCAINE
     Indication: Skin laceration

REACTIONS (1)
  - Product use in unapproved indication [Unknown]
